FAERS Safety Report 6128205-2 (Version None)
Quarter: 2009Q1

REPORT INFORMATION
  Report Type: 
  Country: None (occurrence: None)
  Receive Date: 20090323
  Receipt Date: 20090311
  Transmission Date: 20090719
  Serious: Yes (Other)
  Sender: FDA-Public Use
  Company Number: MX-PFIZER INC-2009185986

PATIENT

DRUGS (1)
  1. GEODON [Suspect]
     Dosage: 60 MG, UNK

REACTIONS (3)
  - ALTERED STATE OF CONSCIOUSNESS [None]
  - DISORIENTATION [None]
  - GAZE PALSY [None]
